FAERS Safety Report 14154649 (Version 2)
Quarter: 2017Q4

REPORT INFORMATION
  Report Type: Other
  Country: US (occurrence: US)
  Receive Date: 20171102
  Receipt Date: 20171115
  Transmission Date: 20180321
  Serious: Yes (Hospitalization, Other)
  Sender: FDA-Public Use
  Company Number: US-INTERCEPT-PMOCA2017001266

PATIENT

DRUGS (2)
  1. OCALIVA [Suspect]
     Active Substance: OBETICHOLIC ACID
     Indication: BILIARY CIRRHOSIS PRIMARY
     Dosage: 5 MG, QD
     Route: 048
     Dates: start: 20161024, end: 20170927
  2. XARELTO [Suspect]
     Active Substance: RIVAROXABAN

REACTIONS (7)
  - Ulcer haemorrhage [Unknown]
  - Peripheral artery stenosis [Unknown]
  - Renal mass [Unknown]
  - Hepatic cirrhosis [Unknown]
  - Hepatic lesion [Unknown]
  - Chronic hepatitis C [Unknown]
  - Ascites [Unknown]

NARRATIVE: CASE EVENT DATE: 20170927
